FAERS Safety Report 9524045 (Version 3)
Quarter: 2013Q4

REPORT INFORMATION
  Report Type: Report from Study
  Country: US (occurrence: US)
  Receive Date: 20130916
  Receipt Date: 20131008
  Transmission Date: 20140711
  Serious: Yes (Other)
  Sender: FDA-Public Use
  Company Number: US-ROCHE-1227346

PATIENT
  Age: 40 Year
  Sex: Female
  Weight: 96.25 kg

DRUGS (1)
  1. ZELBORAF [Suspect]
     Indication: METASTATIC MALIGNANT MELANOMA
     Route: 048
     Dates: start: 20120701, end: 20130830

REACTIONS (8)
  - Keratoacanthoma [Recovered/Resolved]
  - Squamous cell carcinoma of skin [Not Recovered/Not Resolved]
  - Metastatic malignant melanoma [Recovered/Resolved]
  - Skin papilloma [Not Recovered/Not Resolved]
  - Skin disorder [Not Recovered/Not Resolved]
  - Rash generalised [Recovering/Resolving]
  - Photosensitivity reaction [Recovering/Resolving]
  - Hyperkeratosis [Unknown]
